FAERS Safety Report 17140727 (Version 2)
Quarter: 2019Q4

REPORT INFORMATION
  Report Type: Spontaneous
  Country: DE (occurrence: DE)
  Receive Date: 20191211
  Receipt Date: 20191216
  Transmission Date: 20200122
  Serious: Yes (Hospitalization)
  Sender: FDA-Public Use
  Company Number: DE-MYLANLABS-2019M1120239

PATIENT
  Age: 30 Year
  Sex: Male
  Weight: 79 kg

DRUGS (1)
  1. AZATHIOPRINE. [Suspect]
     Active Substance: AZATHIOPRINE
     Indication: PRODUCT USED FOR UNKNOWN INDICATION
     Dosage: 125 MILLIGRAM, QD
     Route: 048

REACTIONS (4)
  - Circulatory collapse [Unknown]
  - Pyrexia [Unknown]
  - Haematochezia [Unknown]
  - Abdominal pain [Unknown]
